FAERS Safety Report 9524680 (Version 1)
Quarter: 2013Q1

REPORT INFORMATION
  Report Type: Spontaneous
  Country: US (occurrence: None)
  Receive Date: 20130305
  Receipt Date: 20130305
  Transmission Date: 20140127
  Serious: Yes (Other)
  Sender: FDA-Public Use
  Company Number: 163-21880-12020702

PATIENT
  Age: 91 Year
  Sex: Female
  Weight: 55.5 kg

DRUGS (1)
  1. REVLIMID [Suspect]
     Dosage: 2.5MG,1 IN 3DAYS.
     Route: 048
     Dates: start: 20110221

REACTIONS (3)
  - Visual acuity reduced [None]
  - Vision blurred [None]
  - Pruritus [None]
